FAERS Safety Report 6488292-9 (Version None)
Quarter: 2009Q4

REPORT INFORMATION
  Report Type: 
  Country: None (occurrence: None)
  Receive Date: 20091210
  Receipt Date: 20091202
  Transmission Date: 20100525
  Serious: Yes (Hospitalization)
  Sender: FDA-Public Use
  Company Number: US-JNJFOC-20091201872

PATIENT
  Sex: Female
  Weight: 43.55 kg

DRUGS (4)
  1. INFLIXIMAB [Suspect]
     Indication: INFLAMMATORY BOWEL DISEASE
     Route: 042
  2. ANTIHISTAMINES [Concomitant]
     Indication: PREMEDICATION
  3. CORTICOSTEROIDS [Concomitant]
     Indication: PREMEDICATION
  4. ANTIBIOTICS [Concomitant]
     Indication: INFLAMMATORY BOWEL DISEASE

REACTIONS (2)
  - CROHN'S DISEASE [None]
  - ILEAL STENOSIS [None]
